FAERS Safety Report 6736031-6 (Version None)
Quarter: 2010Q2

REPORT INFORMATION
  Report Type: 
  Country: None (occurrence: None)
  Receive Date: 20100520
  Receipt Date: 20100520
  Transmission Date: 20101027
  Serious: Yes (Hospitalization)
  Sender: FDA-Public Use
  Company Number: None

PATIENT
  Age: 20 Year
  Sex: Male
  Weight: 63.5 kg

DRUGS (1)
  1. CYCLOBENZAPRINE [Suspect]
     Indication: PAIN

REACTIONS (5)
  - AGITATION [None]
  - CONFUSIONAL STATE [None]
  - MENTAL DISORDER [None]
  - SPEECH DISORDER [None]
  - TACHYCARDIA [None]
